FAERS Safety Report 5843949-5 (Version None)
Quarter: 2008Q3

REPORT INFORMATION
  Report Type: 
  Country: None (occurrence: None)
  Receive Date: 20080808
  Receipt Date: 20080731
  Transmission Date: 20090109
  Serious: Yes (Death, Hospitalization)
  Sender: FDA-Public Use
  Company Number: 167-20785-08080178

PATIENT
  Age: 66 Year
  Sex: Female
  Weight: 68.7 kg

DRUGS (6)
  1. THALIDOMIDE [Suspect]
     Indication: SMALL CELL LUNG CANCER STAGE UNSPECIFIED
     Dosage: 100 MG, DAILY,ORAL
     Route: 048
     Dates: start: 20050929, end: 20051220
  2. TEMAZEPAM [Concomitant]
  3. LANSOPRAZOLE [Concomitant]
  4. METOCLOPRAMIDE [Concomitant]
  5. PROPRANOLOL [Concomitant]
  6. DEXAMETHASONE TAB [Concomitant]

REACTIONS (6)
  - APHASIA [None]
  - BLOOD ALKALINE PHOSPHATASE INCREASED [None]
  - BLOOD GLUCOSE INCREASED [None]
  - CEREBRAL DISORDER [None]
  - CONVULSION [None]
  - HEMIPARESIS [None]
